FAERS Safety Report 8994776 (Version 1)
Quarter: 2012Q4

REPORT INFORMATION
  Report Type: Spontaneous
  Country: US (occurrence: None)
  Receive Date: 20121228
  Receipt Date: 20121228
  Transmission Date: 20130627
  Serious: No
  Sender: FDA-Public Use
  Company Number: None

PATIENT
  Age: 58 Year
  Sex: Female
  Weight: 86.18 kg

DRUGS (2)
  1. OXYBUTYNIN [Suspect]
     Dosage: 10 mg once a day oral
     Route: 048
     Dates: start: 20120703
  2. OXYBUTYNIN [Suspect]
     Dosage: 10 mg once a day oral
     Route: 048
     Dates: start: 20120703

REACTIONS (1)
  - Drug ineffective [None]
